FAERS Safety Report 8851331 (Version 1)
Quarter: 2012Q4

REPORT INFORMATION
  Report Type: 
  Country: US (occurrence: US)
  Receive Date: 20121022
  Receipt Date: 20121022
  Transmission Date: 20130627
  Serious: No
  Sender: FDA-Public Use
  Company Number: US-009507513-1210USA002745

PATIENT
  Sex: Male
  Weight: 106.58 kg

DRUGS (7)
  1. PEG-INTRON [Suspect]
     Dosage: UNK UNK, qw
     Route: 058
  2. REBETOL [Suspect]
     Route: 048
  3. TELAPREVIR [Suspect]
     Route: 048
  4. ZYRTEC [Concomitant]
     Route: 048
  5. LISINOPRIL [Concomitant]
     Route: 048
  6. NEXIUM [Concomitant]
     Route: 048
  7. HYOSCYAMINE [Concomitant]

REACTIONS (4)
  - Haemorrhoidal haemorrhage [Unknown]
  - Proctalgia [Unknown]
  - Anorectal discomfort [Unknown]
  - Haemorrhoids [Unknown]
